FAERS Safety Report 7926358-4 (Version None)
Quarter: 2011Q4

REPORT INFORMATION
  Report Type: 
  Country: None (occurrence: None)
  Receive Date: 20111118
  Receipt Date: 20111116
  Transmission Date: 20120403
  Serious: No
  Sender: FDA-Public Use
  Company Number: US-BIOGENIDEC-2011BI040999

PATIENT
  Sex: Female

DRUGS (2)
  1. TYSABRI [Suspect]
     Indication: MULTIPLE SCLEROSIS
     Route: 042
     Dates: start: 20100205
  2. TYSABRI [Suspect]
     Route: 042
     Dates: start: 20071017, end: 20090624

REACTIONS (3)
  - COGNITIVE DISORDER [None]
  - COORDINATION ABNORMAL [None]
  - MULTIPLE SCLEROSIS [None]
